FAERS Safety Report 5354011-2 (Version None)
Quarter: 2007Q2

REPORT INFORMATION
  Report Type: 
  Country: None (occurrence: None)
  Receive Date: 20070612
  Receipt Date: 20070531
  Transmission Date: 20071010
  Serious: Yes (Other)
  Sender: FDA-Public Use
  Company Number: US-ASTRAZENECA-2006UW08466

PATIENT
  Sex: Male
  Weight: 65.9 kg

DRUGS (6)
  1. SEROQUEL [Suspect]
     Route: 048
     Dates: start: 19970101, end: 20060101
  2. GEODON [Concomitant]
     Dates: start: 20030101, end: 20040101
  3. ZYPREXA [Concomitant]
  4. LEXAPRO [Concomitant]
     Dates: start: 20030101, end: 20060101
  5. EFFEXOR [Concomitant]
     Dates: start: 20010101, end: 20040101
  6. LUNESTA [Concomitant]

REACTIONS (2)
  - DIABETES MELLITUS [None]
  - PANCREATITIS [None]
